FAERS Safety Report 12811666 (Version 3)
Quarter: 2016Q4

REPORT INFORMATION
  Report Type: Spontaneous
  Country: ES (occurrence: ES)
  Receive Date: 20161005
  Receipt Date: 20161024
  Transmission Date: 20170207
  Serious: Yes (Hospitalization)
  Sender: FDA-Public Use
  Company Number: ES-OTSUKA-2016_023410

PATIENT
  Age: 78 Year
  Sex: Male

DRUGS (4)
  1. PLETAAL [Suspect]
     Active Substance: CILOSTAZOL
     Indication: ARTERIAL DISORDER
     Dosage: 50 MG, UNK
     Route: 048
     Dates: start: 201408, end: 20150105
  2. ENALAPRIL [Suspect]
     Active Substance: ENALAPRIL
     Indication: HYPERTENSION
     Dosage: 20 MG, UNK
     Route: 048
     Dates: end: 20150105
  3. TROMALYT [Suspect]
     Active Substance: ASPIRIN
     Indication: ARTERIAL DISORDER
     Dosage: 150 MG, UNK (GASTRO-RESISTANT HARD TABLETS)
     Route: 048
     Dates: start: 201312, end: 20150105
  4. BISOPROLOL [Suspect]
     Active Substance: BISOPROLOL
     Indication: HYPERTENSIVE HEART DISEASE
     Dosage: 5 MG, UNK
     Route: 048
     Dates: start: 201407, end: 20150105

REACTIONS (2)
  - Acute kidney injury [Recovered/Resolved]
  - Hyperkalaemia [Recovered/Resolved]

NARRATIVE: CASE EVENT DATE: 20150105
